FAERS Safety Report 9153617 (Version 1)
Quarter: 2013Q1

REPORT INFORMATION
  Report Type: Spontaneous
  Country: GB (occurrence: None)
  Receive Date: 20130204
  Receipt Date: 20130204
  Transmission Date: 20140127
  Serious: Yes (Other)
  Sender: FDA-Public Use
  Company Number: 2013-00149

PATIENT
  Age: 63 Year
  Sex: Female
  Weight: 58.96 kg

DRUGS (4)
  1. SIMVASTATIN [Suspect]
     Indication: PRODUCT USED FOR UNKNOWN INDICATION
     Dates: start: 20061003
  2. SIMVASTATIN [Suspect]
     Indication: PRODUCT USED FOR UNKNOWN INDICATION
     Route: 048
     Dates: end: 20121214
  3. CLOBETASOL PROPIONATE (DERMOVATE) (UNKNOWN) [Concomitant]
  4. DOXAZOSIN (UNKNOWN) [Concomitant]

REACTIONS (3)
  - Muscle spasms [None]
  - Pain in extremity [None]
  - Sleep disorder [None]
